FAERS Safety Report 19295585 (Version 1)
Quarter: 2021Q2

REPORT INFORMATION
  Report Type: Spontaneous
  Country: CN (occurrence: CN)
  Receive Date: 20210524
  Receipt Date: 20210524
  Transmission Date: 20210717
  Serious: Yes (Other)
  Sender: FDA-Public Use
  Company Number: CN-PFIZER INC-2021536926

PATIENT
  Age: 47 Year
  Sex: Female
  Weight: 51.5 kg

DRUGS (3)
  1. SODIUM CHLORIDE. [Concomitant]
     Active Substance: SODIUM CHLORIDE
     Indication: VEHICLE SOLUTION USE
     Dosage: 100 ML, 1X/DAY
     Route: 041
     Dates: start: 20210508, end: 20210508
  2. LATAMOXEF SODIUM [Concomitant]
     Indication: PAROTID GLAND ENLARGEMENT
     Dosage: 1 G, 2X/DAY
     Route: 041
     Dates: start: 20210505, end: 20210510
  3. SOLU?MEDROL [Suspect]
     Active Substance: METHYLPREDNISOLONE SODIUM SUCCINATE
     Indication: PAROTID GLAND ENLARGEMENT
     Dosage: 40 MG, 1X/DAY
     Route: 041
     Dates: start: 20210508, end: 20210508

REACTIONS (4)
  - Pruritus [Recovered/Resolved]
  - Palpitations [Recovered/Resolved]
  - Rash erythematous [Recovered/Resolved]
  - Off label use [Unknown]

NARRATIVE: CASE EVENT DATE: 20210508
